FAERS Safety Report 13181213 (Version 1)
Quarter: 2017Q1

REPORT INFORMATION
  Report Type: Spontaneous
  Country: US (occurrence: US)
  Receive Date: 20170202
  Receipt Date: 20170202
  Transmission Date: 20170428
  Serious: No
  Sender: FDA-Public Use
  Company Number: US-SMITH AND NEPHEW, INC-2016SMT01018

PATIENT
  Sex: Male
  Weight: 94.33 kg

DRUGS (26)
  1. ALDACTONE [Concomitant]
     Active Substance: SPIRONOLACTONE
  2. SINGULAIR [Concomitant]
     Active Substance: MONTELUKAST SODIUM
  3. BENADRYL [Concomitant]
     Active Substance: DIPHENHYDRAMINE HYDROCHLORIDE
  4. METFORMIN [Concomitant]
     Active Substance: METFORMIN HYDROCHLORIDE
  5. REQUIP [Concomitant]
     Active Substance: ROPINIROLE HYDROCHLORIDE
  6. ZANTAC [Concomitant]
     Active Substance: RANITIDINE HYDROCHLORIDE
  7. VITAMIN D [Concomitant]
     Active Substance: CHOLECALCIFEROL
  8. ATARAX [Concomitant]
     Active Substance: HYDROXYZINE HYDROCHLORIDE
  9. NASONEX [Concomitant]
     Active Substance: MOMETASONE FUROATE
  10. ALBUTEROL. [Concomitant]
     Active Substance: ALBUTEROL
  11. PREDNISONE. [Concomitant]
     Active Substance: PREDNISONE
  12. NEURONTIN [Concomitant]
     Active Substance: GABAPENTIN
  13. ATIVAN [Concomitant]
     Active Substance: LORAZEPAM
  14. XOLAIR [Concomitant]
     Active Substance: OMALIZUMAB
  15. NORVASC [Concomitant]
     Active Substance: AMLODIPINE BESYLATE
  16. AUGMENTIN [Concomitant]
     Active Substance: AMOXICILLIN\CLAVULANATE POTASSIUM
  17. XYZAL [Concomitant]
     Active Substance: LEVOCETIRIZINE DIHYDROCHLORIDE
  18. REGRANEX [Suspect]
     Active Substance: BECAPLERMIN
     Indication: WOUND
     Dosage: UNK UNK, 1X/DAY (12 HOURS ON, 12 HOURS OFF)
     Route: 061
     Dates: start: 201610
  19. BYSTOLIC [Concomitant]
     Active Substance: NEBIVOLOL HYDROCHLORIDE
  20. WELLBUTRIN [Concomitant]
     Active Substance: BUPROPION HYDROCHLORIDE
  21. ADVAIR HFA [Concomitant]
     Active Substance: FLUTICASONE PROPIONATE\SALMETEROL XINAFOATE
  22. GAMMAGARD [Concomitant]
     Active Substance: HUMAN IMMUNOGLOBULIN G
  23. CLARITIN [Concomitant]
     Active Substance: LORATADINE
  24. EPIPEN [Concomitant]
     Active Substance: EPINEPHRINE
     Dosage: UNK, AS NEEDED
  25. CRESTOR [Concomitant]
     Active Substance: ROSUVASTATIN CALCIUM
  26. CIALIS [Concomitant]
     Active Substance: TADALAFIL

REACTIONS (2)
  - Application site dryness [Unknown]
  - Wound complication [Unknown]

NARRATIVE: CASE EVENT DATE: 2016
